FAERS Safety Report 12065446 (Version 2)
Quarter: 2017Q1

REPORT INFORMATION
  Report Type: Spontaneous
  Country: US (occurrence: US)
  Receive Date: 20160210
  Receipt Date: 20170209
  Transmission Date: 20170428
  Serious: No
  Sender: FDA-Public Use
  Company Number: US-ALLERGAN-1510411US

PATIENT
  Sex: Female

DRUGS (6)
  1. BOTOX [Suspect]
     Active Substance: ONABOTULINUMTOXINA
     Indication: ATAXIA
  2. VALSARTAN. [Concomitant]
     Active Substance: VALSARTAN
     Indication: HYPERTENSION
     Dosage: UNK
     Route: 048
  3. NORFLEX [Concomitant]
     Active Substance: ORPHENADRINE CITRATE
     Indication: PRODUCT USED FOR UNKNOWN INDICATION
     Dosage: UNK
     Route: 048
  4. BOTOX [Suspect]
     Active Substance: ONABOTULINUMTOXINA
     Indication: KNEE DEFORMITY
  5. BOTOX [Suspect]
     Active Substance: ONABOTULINUMTOXINA
     Indication: NERVOUS SYSTEM DISORDER
     Dosage: UNK UNK, SINGLE
     Route: 030
     Dates: start: 2014, end: 2014
  6. EVISTA [Concomitant]
     Active Substance: RALOXIFENE HYDROCHLORIDE
     Indication: MUSCULOSKELETAL DISORDER
     Dosage: UNK
     Route: 048

REACTIONS (10)
  - Balance disorder [Not Recovered/Not Resolved]
  - Drug ineffective [Unknown]
  - Fatigue [Recovered/Resolved]
  - Arthralgia [Recovered/Resolved]
  - Off label use [Unknown]
  - Excessive eye blinking [Recovered/Resolved]
  - Adverse reaction [Recovered/Resolved]
  - Joint swelling [Recovered/Resolved]
  - Asthenia [Recovered/Resolved]
  - Pain [Recovered/Resolved]

NARRATIVE: CASE EVENT DATE: 2015
